FAERS Safety Report 13141945 (Version 1)
Quarter: 2017Q1

REPORT INFORMATION
  Report Type: Spontaneous
  Country: US (occurrence: US)
  Receive Date: 20170123
  Receipt Date: 20170123
  Transmission Date: 20170428
  Serious: Yes (Other)
  Sender: FDA-Public Use
  Company Number: None

PATIENT
  Age: 23 Year
  Sex: Female
  Weight: 138.6 kg

DRUGS (5)
  1. DEFINITY [Suspect]
     Active Substance: PERFLUTREN
     Indication: ECHOCARDIOGRAM
     Dates: start: 20170105, end: 20170105
  2. PRILOSEC [Concomitant]
     Active Substance: OMEPRAZOLE MAGNESIUM
  3. SYMBICORT [Concomitant]
     Active Substance: BUDESONIDE\FORMOTEROL FUMARATE DIHYDRATE
  4. ALBUTEROL. [Concomitant]
     Active Substance: ALBUTEROL
  5. SINUS MEDICATIONS [Concomitant]

REACTIONS (13)
  - Nausea [None]
  - Headache [None]
  - Nonspecific reaction [None]
  - Erythema [None]
  - Dyspnoea [None]
  - Dizziness [None]
  - Hypertension [None]
  - Bronchospasm [None]
  - Cough [None]
  - Impaired work ability [None]
  - Chest pain [None]
  - Meningitis chemical [None]
  - Activities of daily living impaired [None]

NARRATIVE: CASE EVENT DATE: 20170105
